FAERS Safety Report 6867092-1 (Version None)
Quarter: 2010Q3

REPORT INFORMATION
  Report Type: 
  Country: None (occurrence: None)
  Receive Date: 20100722
  Receipt Date: 20100712
  Transmission Date: 20110219
  Serious: Yes (Hospitalization, Congenital Anomaly)
  Sender: FDA-Public Use
  Company Number: A0843344A

PATIENT
  Sex: Male

DRUGS (4)
  1. KEPPRA [Suspect]
     Dosage: 2000MG TWICE PER DAY
     Dates: end: 20090529
  2. LAMICTAL [Suspect]
     Dates: end: 20090529
  3. MULTI-VITAMIN [Concomitant]
     Indication: PROPHYLAXIS
     Dosage: 1UNIT PER DAY
     Dates: end: 20090529
  4. ZYRTEC [Concomitant]
     Dates: end: 20090529

REACTIONS (2)
  - DRUG EXPOSURE DURING PREGNANCY [None]
  - EXOMPHALOS [None]
